FAERS Safety Report 4832115-8 (Version None)
Quarter: 2005Q4

REPORT INFORMATION
  Report Type: 
  Country: None (occurrence: None)
  Receive Date: 20051118
  Receipt Date: 20050607
  Transmission Date: 20060501
  Serious: Yes (Hospitalization)
  Sender: FDA-Public Use
  Company Number: US-MERCK-0506USA01422

PATIENT
  Age: 52 Year
  Sex: Female
  Weight: 122 kg

DRUGS (26)
  1. VIOXX [Suspect]
     Indication: OSTEOARTHRITIS
     Route: 048
     Dates: start: 19991122, end: 20041020
  2. VIOXX [Suspect]
     Route: 048
     Dates: start: 20040304, end: 20041020
  3. DIOVAN [Concomitant]
     Route: 065
     Dates: start: 20001016, end: 20050215
  4. LABETALOL HYDROCHLORIDE [Concomitant]
     Route: 065
     Dates: start: 20010111, end: 20050215
  5. ZOCOR [Concomitant]
     Route: 048
     Dates: start: 19990825, end: 20040129
  6. POTASSIUM CHLORIDE [Concomitant]
     Route: 065
  7. PRILOSEC [Concomitant]
     Route: 048
  8. ATIVAN [Concomitant]
     Indication: DEPRESSION
     Route: 065
  9. DIOVAN HCT [Concomitant]
     Indication: HYPERTENSION
     Route: 065
  10. ELAVIL [Concomitant]
     Indication: DEPRESSION
     Route: 065
  11. PAXIL [Concomitant]
     Indication: DEPRESSION
     Route: 065
  12. ZOLOFT [Concomitant]
     Indication: DEPRESSION
     Route: 065
  13. ADVAIR DISKUS 100/50 [Concomitant]
     Indication: ASTHMA
     Route: 065
  14. ALBUTEROL SULFATE [Concomitant]
     Indication: ASTHMA
     Route: 065
  15. ALBUTEROL [Concomitant]
     Indication: ASTHMA
     Route: 065
  16. ACETAMINOPHEN AND CODEINE [Concomitant]
     Indication: PAIN
     Route: 065
     Dates: start: 20030401, end: 20030614
  17. DUONEB [Concomitant]
     Indication: ASTHMA
     Route: 065
  18. FLOVENT [Concomitant]
     Indication: ASTHMA
     Route: 065
  19. NAPROXEN [Concomitant]
     Indication: PAIN
     Route: 065
     Dates: start: 19990706, end: 20000226
  20. NEXIUM [Concomitant]
     Indication: GASTROOESOPHAGEAL REFLUX DISEASE
     Route: 065
  21. PROSTEP NICOTINE TRANSDERMAL SYSTEM [Concomitant]
     Indication: EX-SMOKER
     Route: 065
  22. NITROGLYCERIN PROLONGATE [Concomitant]
     Indication: ANGINA PECTORIS
     Route: 065
  23. NITROQUICK [Concomitant]
     Indication: ANGINA PECTORIS
     Route: 065
  24. PROTONIX [Concomitant]
     Indication: ULCER
     Route: 065
  25. ROXICET [Concomitant]
     Indication: PAIN
     Route: 065
     Dates: start: 19990713, end: 20040930
  26. SIMVASTATIN [Concomitant]
     Indication: BLOOD CHOLESTEROL INCREASED
     Route: 065

REACTIONS (54)
  - ANEURYSM [None]
  - ANGINA UNSTABLE [None]
  - ANXIETY [None]
  - AORTIC VALVE INCOMPETENCE [None]
  - ASTHENIA [None]
  - ASTHMA [None]
  - BLOOD PRESSURE INCREASED [None]
  - BRONCHITIS [None]
  - CARDIAC DISORDER [None]
  - CARDIAC MURMUR [None]
  - CARDIOMEGALY [None]
  - CHEST PAIN [None]
  - CHRONIC OBSTRUCTIVE PULMONARY DISEASE [None]
  - CORONARY ARTERY DISEASE [None]
  - CORYNEBACTERIUM INFECTION [None]
  - COUGH [None]
  - DEPRESSION [None]
  - DIZZINESS [None]
  - DRUG INEFFECTIVE [None]
  - DYSPNOEA [None]
  - ENDOMETRIAL HYPERPLASIA [None]
  - FACIAL PARESIS [None]
  - FATIGUE [None]
  - FUNGAL INFECTION [None]
  - HAEMATOMA [None]
  - HYPERSENSITIVITY [None]
  - HYPERTENSION [None]
  - HYPOAESTHESIA [None]
  - INFECTION [None]
  - INSOMNIA [None]
  - IRON DEFICIENCY ANAEMIA [None]
  - MENOMETRORRHAGIA [None]
  - MIGRAINE [None]
  - MITRAL VALVE INCOMPETENCE [None]
  - MUSCLE SPASMS [None]
  - MYOCARDIAL INFARCTION [None]
  - NASAL CONGESTION [None]
  - NAUSEA [None]
  - OEDEMA PERIPHERAL [None]
  - OVARIAN CYST [None]
  - PALPITATIONS [None]
  - PARAESTHESIA [None]
  - RASH [None]
  - SINUS HEADACHE [None]
  - SKIN IRRITATION [None]
  - SLEEP APNOEA SYNDROME [None]
  - STAPHYLOCOCCAL INFECTION [None]
  - TACHYCARDIA [None]
  - TINNITUS [None]
  - URINARY TRACT INFECTION [None]
  - UTERINE LEIOMYOMA [None]
  - VASCULAR PSEUDOANEURYSM [None]
  - VENOUS INSUFFICIENCY [None]
  - WOUND INFECTION [None]
